FAERS Safety Report 10552209 (Version 5)
Quarter: 2016Q1

REPORT INFORMATION
  Report Type: Spontaneous
  Country: US (occurrence: US)
  Receive Date: 20141029
  Receipt Date: 20160128
  Transmission Date: 20160525
  Serious: Yes (Other)
  Sender: FDA-Public Use
  Company Number: US-ELI_LILLY_AND_COMPANY-US201410007596

PATIENT
  Sex: Female
  Weight: 73.47 kg

DRUGS (17)
  1. CYMBALTA [Suspect]
     Active Substance: DULOXETINE HYDROCHLORIDE
     Dosage: 30 MG, QD
     Route: 048
  2. CLIMARA [Concomitant]
     Active Substance: ESTRADIOL
  3. CRESTOR [Concomitant]
     Active Substance: ROSUVASTATIN CALCIUM
  4. CYMBALTA [Suspect]
     Active Substance: DULOXETINE HYDROCHLORIDE
     Dosage: 90 MG, QD
     Route: 048
     Dates: end: 20121022
  5. MACROBID [Concomitant]
     Active Substance: NITROFURANTOIN\NITROFURANTOIN MONOHYDRATE
  6. CYMBALTA [Suspect]
     Active Substance: DULOXETINE HYDROCHLORIDE
     Indication: NEUROPATHY PERIPHERAL
     Dosage: 30 MG, QD
     Route: 048
     Dates: start: 20051010
  7. DETROL LA [Concomitant]
     Active Substance: TOLTERODINE TARTRATE
  8. LISINOPRIL                         /00894002/ [Concomitant]
     Active Substance: LISINOPRIL
  9. CYMBALTA [Suspect]
     Active Substance: DULOXETINE HYDROCHLORIDE
     Dosage: 60 MG, QD
     Route: 048
  10. CYMBALTA [Suspect]
     Active Substance: DULOXETINE HYDROCHLORIDE
     Dosage: 60 MG, UNKNOWN
     Route: 048
  11. LAMISIL [Concomitant]
     Active Substance: TERBINAFINE HYDROCHLORIDE
  12. PREGABALIN. [Concomitant]
     Active Substance: PREGABALIN
  13. CYMBALTA [Suspect]
     Active Substance: DULOXETINE HYDROCHLORIDE
     Dosage: 60 MG, QD
     Route: 048
  14. METANX [Concomitant]
     Active Substance: LEVOMEFOLATE CALCIUM\METHYLCOBALAMIN\PYRIDOXAL PHOSPHATE ANHYDROUS
  15. OMEPRAZOLE. [Concomitant]
     Active Substance: OMEPRAZOLE
  16. CEFADIN                            /00145501/ [Concomitant]
  17. CELADRIN [Concomitant]
     Active Substance: MENTHOL
     Dosage: UNK, UNKNOWN
     Route: 065

REACTIONS (17)
  - Blood pressure increased [Unknown]
  - Feeling jittery [Unknown]
  - Suicidal ideation [Unknown]
  - Pain in extremity [Unknown]
  - Fatigue [Unknown]
  - Paraesthesia [Unknown]
  - Drug withdrawal syndrome [Unknown]
  - Vomiting [Unknown]
  - Night sweats [Unknown]
  - Skin odour abnormal [Unknown]
  - Abdominal distension [Unknown]
  - Hallucination [Unknown]
  - Off label use [Unknown]
  - Weight increased [Unknown]
  - Nausea [Unknown]
  - Insomnia [Unknown]
  - Nervousness [Unknown]

NARRATIVE: CASE EVENT DATE: 2005
